FAERS Safety Report 7531155-8 (Version None)
Quarter: 2011Q2

REPORT INFORMATION
  Report Type: 
  Country: None (occurrence: None)
  Receive Date: 20110608
  Receipt Date: 20110527
  Transmission Date: 20111010
  Serious: Yes (Other)
  Sender: FDA-Public Use
  Company Number: TR-BAYER-2011-046024

PATIENT
  Age: 44 Year
  Sex: Female
  Weight: 85 kg

DRUGS (1)
  1. MIRENA [Suspect]
     Dosage: UNK

REACTIONS (1)
  - CORONARY ARTERY EMBOLISM [None]
